FAERS Safety Report 5271254-7 (Version None)
Quarter: 2007Q1

REPORT INFORMATION
  Report Type: 
  Country: None (occurrence: None)
  Receive Date: 20061214
  Receipt Date: 20060721
  Transmission Date: 20070707
  Serious: Yes (Hospitalization, Other)
  Sender: FDA-Public Use
  Company Number: 2006070139

PATIENT
  Age: 51 Year
  Sex: Male
  Weight: 81.6475 kg

DRUGS (3)
  1. BEXTRA [Suspect]
     Indication: ARTHRITIS
     Dosage: 20 MG (20 MG,1 IN 1 D)
     Dates: start: 20030502
  2. BEXTRA [Suspect]
     Indication: INFLAMMATION
     Dosage: 20 MG (20 MG,1 IN 1 D)
     Dates: start: 20030502
  3. BEXTRA [Suspect]
     Indication: PAIN MANAGEMENT
     Dosage: 20 MG (20 MG,1 IN 1 D)
     Dates: start: 20030502

REACTIONS (1)
  - MYOCARDIAL INFARCTION [None]
